FAERS Safety Report 8328772-4 (Version None)
Quarter: 2012Q2

REPORT INFORMATION
  Report Type: 
  Country: None (occurrence: None)
  Receive Date: 20120430
  Receipt Date: 20120418
  Transmission Date: 20120825
  Serious: Yes (Hospitalization)
  Sender: FDA-Public Use
  Company Number: 1268385

PATIENT
  Age: 60 Year
  Sex: Male

DRUGS (1)
  1. GEMCITABINE HYDROCHLORIDE [Suspect]
     Indication: ADENOCARCINOMA PANCREAS
     Dosage: 1,000 MG/M^2 WEEKLY

REACTIONS (9)
  - MYOPATHY [None]
  - OEDEMA PERIPHERAL [None]
  - NECROSIS [None]
  - PAIN IN EXTREMITY [None]
  - MUSCLE CONTRACTIONS INVOLUNTARY [None]
  - MUSCULOSKELETAL CHEST PAIN [None]
  - MYOSITIS [None]
  - ERYTHEMA [None]
  - GAIT DISTURBANCE [None]
